FAERS Safety Report 18904510 (Version 3)
Quarter: 2021Q2

REPORT INFORMATION
  Report Type: Spontaneous
  Country: FR (occurrence: FR)
  Receive Date: 20210217
  Receipt Date: 20210628
  Transmission Date: 20210717
  Serious: Yes (Life-Threatening, Other)
  Sender: FDA-Public Use
  Company Number: FR-GILEAD-2021-0517273

PATIENT
  Age: 71 Year
  Sex: Female
  Weight: 75 kg

DRUGS (1)
  1. YESCARTA [Suspect]
     Active Substance: AXICABTAGENE CILOLEUCEL
     Indication: CENTRAL NERVOUS SYSTEM LYMPHOMA
     Dosage: UNK
     Route: 041
     Dates: start: 20200820, end: 20200820

REACTIONS (4)
  - Status epilepticus [Recovering/Resolving]
  - Pancytopenia [Not Recovered/Not Resolved]
  - Off label use [Recovered/Resolved]
  - Cognitive disorder [Recovering/Resolving]

NARRATIVE: CASE EVENT DATE: 20200820
